FAERS Safety Report 21459222 (Version 1)
Quarter: 2022Q4

REPORT INFORMATION
  Report Type: Spontaneous
  Country: CH (occurrence: CH)
  Receive Date: 20221014
  Receipt Date: 20221014
  Transmission Date: 20230113
  Serious: Yes (Other)
  Sender: FDA-Public Use
  Company Number: CH-UCBSA-2022050488

PATIENT
  Sex: Female

DRUGS (6)
  1. VIMPAT [Suspect]
     Active Substance: LACOSAMIDE
     Indication: Focal dyscognitive seizures
     Dosage: 200 MG AM AND 250 MG PM
     Dates: start: 202102, end: 202111
  2. VIMPAT [Suspect]
     Active Substance: LACOSAMIDE
     Dosage: 600 MG/DAY
     Dates: start: 202111, end: 202205
  3. VIMPAT [Suspect]
     Active Substance: LACOSAMIDE
     Dosage: 20ML (200 MG) AM AND 25ML (250 MG) PM
     Dates: start: 20220502
  4. VIMPAT [Suspect]
     Active Substance: LACOSAMIDE
     Indication: Focal dyscognitive seizures
     Dosage: 200 MG MORNING AND 250 MG AT NIGHT
  5. VIMPAT [Suspect]
     Active Substance: LACOSAMIDE
     Dosage: 600 MG A DAY
  6. CLOBAZAM [Concomitant]
     Active Substance: CLOBAZAM
     Indication: Product used for unknown indication

REACTIONS (13)
  - Focal dyscognitive seizures [Unknown]
  - Cystic lymphangioma [Unknown]
  - Brain injury [Unknown]
  - Meningioma [Unknown]
  - Post procedural complication [Unknown]
  - Status epilepticus [Unknown]
  - CSF shunt operation [Unknown]
  - Hydrocephalus [Recovering/Resolving]
  - Sedation [Recovering/Resolving]
  - Fatigue [Unknown]
  - Somnolence [Recovering/Resolving]
  - Product use issue [Unknown]
  - Overdose [Unknown]

NARRATIVE: CASE EVENT DATE: 20210201
